FAERS Safety Report 7079940-3 (Version None)
Quarter: 2010Q4

REPORT INFORMATION
  Report Type: 
  Country: None (occurrence: None)
  Receive Date: 20101102
  Receipt Date: 20101027
  Transmission Date: 20110411
  Serious: Yes (Other)
  Sender: FDA-Public Use
  Company Number: US-PFIZER INC-2010136807

PATIENT
  Age: 49 Year
  Sex: Female

DRUGS (2)
  1. FESOTERODINE [Suspect]
     Indication: URGE INCONTINENCE
  2. FESOTERODINE [Suspect]
     Indication: POLLAKIURIA

REACTIONS (1)
  - PYELONEPHRITIS ACUTE [None]
